FAERS Safety Report 25216572 (Version 2)
Quarter: 2025Q2

REPORT INFORMATION
  Report Type: Spontaneous
  Country: FR (occurrence: FR)
  Receive Date: 20250419
  Receipt Date: 20250531
  Transmission Date: 20250716
  Serious: Yes (Other)
  Sender: AUROBINDO
  Company Number: FR-ROCHE-3112017

PATIENT
  Age: 64 Year
  Sex: Female
  Weight: 62 kg

DRUGS (9)
  1. CAPECITABINE [Suspect]
     Active Substance: CAPECITABINE
     Indication: Hypoglycaemia
     Route: 065
     Dates: start: 202006, end: 20201213
  2. CAPECITABINE [Suspect]
     Active Substance: CAPECITABINE
     Indication: Insulinoma
  3. TEMOZOLOMIDE [Suspect]
     Active Substance: TEMOZOLOMIDE
     Indication: Hypoglycaemia
     Route: 065
     Dates: start: 202006, end: 20201213
  4. TEMOZOLOMIDE [Suspect]
     Active Substance: TEMOZOLOMIDE
     Indication: Insulinoma
  5. SUNITINIB [Concomitant]
     Active Substance: SUNITINIB
     Indication: Product used for unknown indication
     Route: 065
     Dates: start: 201912, end: 202006
  6. OCTREOTIDE [Concomitant]
     Active Substance: OCTREOTIDE
     Indication: Insulinoma
     Route: 065
     Dates: start: 201602, end: 201602
  7. PASIREOTIDE [Concomitant]
     Active Substance: PASIREOTIDE
     Indication: Product used for unknown indication
     Route: 065
     Dates: start: 202012
  8. PASIREOTIDE [Concomitant]
     Active Substance: PASIREOTIDE
     Route: 065
     Dates: start: 202202
  9. PASIREOTIDE [Concomitant]
     Active Substance: PASIREOTIDE
     Route: 065
     Dates: start: 201912, end: 202012

REACTIONS (2)
  - Thrombocytopenia [Recovering/Resolving]
  - Off label use [Unknown]
